FAERS Safety Report 19891398 (Version 1)
Quarter: 2021Q3

REPORT INFORMATION
  Report Type: Report from Study
  Country: BR (occurrence: BR)
  Receive Date: 20210928
  Receipt Date: 20210928
  Transmission Date: 20211014
  Serious: Yes (Other)
  Sender: FDA-Public Use
  Company Number: BR-TAKEDA-2021TUS059252

PATIENT
  Age: 20 Year
  Sex: Male
  Weight: 74 kg

DRUGS (1)
  1. HEMO?8R [Suspect]
     Active Substance: ANTIHEMOPHILIC FACTOR, HUMAN RECOMBINANT
     Indication: FACTOR VIII DEFICIENCY
     Dosage: 1500 INTERNATIONAL UNIT, 3/WEEK
     Route: 042
     Dates: start: 2017

REACTIONS (5)
  - Haemarthrosis [Unknown]
  - Pain in extremity [Recovering/Resolving]
  - Peripheral swelling [Recovering/Resolving]
  - Weight increased [Unknown]
  - COVID-19 [Recovered/Resolved]

NARRATIVE: CASE EVENT DATE: 20210415
